FAERS Safety Report 6996716-3 (Version None)
Quarter: 2010Q3

REPORT INFORMATION
  Report Type: 
  Country: None (occurrence: None)
  Receive Date: 20100918
  Receipt Date: 20090828
  Transmission Date: 20110219
  Serious: No
  Sender: FDA-Public Use
  Company Number: US-WYE-H09988009

PATIENT
  Age: 56 Year
  Sex: Female
  Weight: 68.1 kg

DRUGS (4)
  1. PREMPRO [Suspect]
     Indication: HORMONE THERAPY
     Route: 048
     Dates: start: 20061001
  2. MULTI-VITAMINS [Concomitant]
  3. CALCIUM [Concomitant]
  4. LISINOPRIL [Concomitant]

REACTIONS (4)
  - DRUG INEFFECTIVE [None]
  - INSOMNIA [None]
  - IRRITABILITY [None]
  - MICTURITION URGENCY [None]
